FAERS Safety Report 8127085-3 (Version None)
Quarter: 2012Q1

REPORT INFORMATION
  Report Type: 
  Country: None (occurrence: None)
  Receive Date: 20120210
  Receipt Date: 20120207
  Transmission Date: 20120608
  Serious: Yes (Other)
  Sender: FDA-Public Use
  Company Number: US-JNJFOC-20120204061

PATIENT
  Sex: Male

DRUGS (2)
  1. LEVAQUIN [Suspect]
     Indication: ACUTE SINUSITIS
     Route: 048
     Dates: start: 20120206
  2. LEVAQUIN [Suspect]
     Route: 048

REACTIONS (2)
  - SINUS OPERATION [None]
  - TENDONITIS [None]
